FAERS Safety Report 5972298-X (Version None)
Quarter: 2008Q4

REPORT INFORMATION
  Report Type: 
  Country: None (occurrence: None)
  Receive Date: 20081201
  Receipt Date: 20080721
  Transmission Date: 20090506
  Serious: Yes (Other)
  Sender: FDA-Public Use
  Company Number: US-TEVA-174702USA

PATIENT
  Sex: Female
  Weight: 61.29 kg

DRUGS (1)
  1. SALBUTAMOL SULFATE INHALATION, 0.09 MG [Suspect]
     Indication: ASTHMA
     Dosage: 2 PUFFS 4 TIMES DAILY (200 METERED ACUATIONS)
     Route: 048

REACTIONS (3)
  - ASTHMA [None]
  - DRUG INEFFECTIVE [None]
  - WHEEZING [None]
